FAERS Safety Report 24677295 (Version 1)
Quarter: 2024Q4

REPORT INFORMATION
  Report Type: Spontaneous
  Country: US (occurrence: US)
  Receive Date: 20241129
  Receipt Date: 20241129
  Transmission Date: 20250115
  Serious: No
  Sender: GLAXOSMITHKLINE
  Company Number: US-GSK-US2024AMR132112

PATIENT

DRUGS (7)
  1. FLOVENT [Suspect]
     Active Substance: FLUTICASONE PROPIONATE
     Indication: Sinusitis
     Dosage: UNK
  2. FLOVENT [Suspect]
     Active Substance: FLUTICASONE PROPIONATE
     Indication: Anosmia
  3. BUDESONIDE [Suspect]
     Active Substance: BUDESONIDE
     Indication: Sinusitis
     Dosage: UNK UNK, BID, AMPULE NEILMED SINUS RINSE
  4. BUDESONIDE [Suspect]
     Active Substance: BUDESONIDE
     Indication: Anosmia
  5. LEVOCETIRIZINE [Suspect]
     Active Substance: LEVOCETIRIZINE
     Indication: Sinusitis
     Dosage: UNK
  6. LEVOCETIRIZINE [Suspect]
     Active Substance: LEVOCETIRIZINE
     Indication: Anosmia
  7. METHYLPREDNISOLONE [Suspect]
     Active Substance: METHYLPREDNISOLONE
     Indication: Anosmia
     Dosage: UNK

REACTIONS (5)
  - Mania [Unknown]
  - Insomnia [Unknown]
  - Weight increased [Unknown]
  - Paranasal sinus inflammation [Not Recovered/Not Resolved]
  - Drug ineffective for unapproved indication [Unknown]
